FAERS Safety Report 11211801 (Version 1)
Quarter: 2015Q2

REPORT INFORMATION
  Report Type: Spontaneous
  Country: IT (occurrence: None)
  Receive Date: 20150619
  Receipt Date: 20150619
  Transmission Date: 20150821
  Serious: Yes (Hospitalization)
  Sender: FDA-Public Use
  Company Number: 8029751D

PATIENT
  Age: 32 Year

DRUGS (3)
  1. LINEZOLID (LINEZOLID) (LINEZOLID) [Suspect]
     Active Substance: LINEZOLID
     Indication: SOFT TISSUE INFECTION
     Route: 048
  2. LINEZOLID (LINEZOLID) (LINEZOLID) [Suspect]
     Active Substance: LINEZOLID
     Indication: SKIN INFECTION
     Route: 048
  3. LEVOTHYROXINE (LEVOTHYROXINE)(LEVOTHYROXINE SODIUM) [Suspect]
     Active Substance: LEVOTHYROXINE
     Indication: HYPOTHYROIDISM
     Dosage: REPLACEMENT THERAPY

REACTIONS (3)
  - Soft tissue infection [None]
  - Skin infection [None]
  - Drug interaction [None]
